FAERS Safety Report 24214456 (Version 1)
Quarter: 2024Q3

REPORT INFORMATION
  Report Type: Spontaneous
  Country: CN (occurrence: CN)
  Receive Date: 20240815
  Receipt Date: 20240815
  Transmission Date: 20241016
  Serious: Yes (Hospitalization, Other)
  Sender: NOVARTIS
  Company Number: CN-002147023-NVSC2024CN163167

PATIENT
  Age: 31 Year
  Sex: Female

DRUGS (5)
  1. LETROZOLE [Suspect]
     Active Substance: LETROZOLE
     Indication: Ovulation disorder
     Dosage: 2.5 MG, QD (FOR 5 DAYS)
     Route: 048
  2. METFORMIN [Suspect]
     Active Substance: METFORMIN HYDROCHLORIDE
     Indication: Insulin resistance
     Dosage: UNK
     Route: 048
  3. HUMAN CHORIONIC GONADOTROPIN [Suspect]
     Active Substance: GONADOTROPHIN, CHORIONIC
     Indication: Ovulation induction
     Dosage: 75 IU (1 TIME)
     Route: 030
  4. PROGESTERONE [Suspect]
     Active Substance: PROGESTERONE
     Indication: Abortion threatened
     Dosage: 40 MG, QD
     Route: 030
  5. DYDROGESTERONE [Suspect]
     Active Substance: DYDROGESTERONE
     Indication: Abortion threatened
     Dosage: 10 MG
     Route: 048

REACTIONS (10)
  - Abortion threatened [Unknown]
  - Abdominal pain [Unknown]
  - Vaginal haemorrhage [Unknown]
  - Hydrometra [Unknown]
  - Abdominal pain lower [Unknown]
  - Vaginal discharge [Unknown]
  - Abdominal distension [Unknown]
  - Maternal exposure before pregnancy [Unknown]
  - Maternal exposure during pregnancy [Unknown]
  - Product use in unapproved indication [Unknown]
